FAERS Safety Report 12118236 (Version 1)
Quarter: 2016Q1

REPORT INFORMATION
  Report Type: Report from Study
  Country: BR (occurrence: BR)
  Receive Date: 20160226
  Receipt Date: 20160226
  Transmission Date: 20160526
  Serious: Yes (Hospitalization)
  Sender: FDA-Public Use
  Company Number: BR-ROCHE-1717169

PATIENT
  Sex: Male
  Weight: 21.4 kg

DRUGS (4)
  1. PANCREATIC ENZYMES [Concomitant]
     Active Substance: UNSPECIFIED INGREDIENT
     Indication: CYSTIC FIBROSIS
  2. PULMOZYME [Suspect]
     Active Substance: DORNASE ALFA
     Indication: CYSTIC FIBROSIS
     Route: 065
     Dates: start: 201509
  3. TOBI [Concomitant]
     Active Substance: TOBRAMYCIN
     Indication: CYSTIC FIBROSIS
  4. COLOMYCIN [Concomitant]
     Active Substance: COLISTIN
     Indication: CYSTIC FIBROSIS

REACTIONS (1)
  - Gastric disorder [Not Recovered/Not Resolved]
